FAERS Safety Report 8463527 (Version 4)
Quarter: 2012Q4

REPORT INFORMATION
  Report Type: 
  Country: NZ (occurrence: NZ)
  Receive Date: 20120316
  Receipt Date: 20121026
  Transmission Date: 20130627
  Serious: Yes (Death, Other)
  Sender: FDA-Public Use
  Company Number: NZ-PURDUE-USA-2009-0083814

PATIENT
  Age: 19 Year
  Sex: Female

DRUGS (2)
  1. OXYCONTIN TABLETS [Suspect]
     Indication: PAIN
     Dosage: UNK
     Dates: start: 200704, end: 20081105
  2. METHADONE [Interacting]
     Indication: INTENTIONAL DRUG MISUSE
     Dosage: UNK
     Route: 048
     Dates: end: 20081105

REACTIONS (5)
  - Overdose [Fatal]
  - Drug abuse [Unknown]
  - Drug interaction [Fatal]
  - Somnolence [Unknown]
  - Memory impairment [Unknown]
